FAERS Safety Report 22272983 (Version 1)
Quarter: 2023Q2

REPORT INFORMATION
  Report Type: Spontaneous
  Country: CA (occurrence: CA)
  Receive Date: 20230502
  Receipt Date: 20230502
  Transmission Date: 20230722
  Serious: Yes (Other)
  Sender: FDA-Public Use
  Company Number: CA-JNJFOC-20230466362

PATIENT
  Age: 50 Year
  Sex: Male
  Weight: 87.168 kg

DRUGS (9)
  1. INVOKANA [Suspect]
     Active Substance: CANAGLIFLOZIN
     Indication: Type 2 diabetes mellitus
     Route: 048
  2. ATORVASTATIN [Concomitant]
     Active Substance: ATORVASTATIN
     Route: 065
  3. EZETIMIBE [Concomitant]
     Active Substance: EZETIMIBE
  4. FLUCONAZOLE [Concomitant]
     Active Substance: FLUCONAZOLE
  5. GLYBURIDE [Concomitant]
     Active Substance: GLYBURIDE
  6. OZEMPIC [Concomitant]
     Active Substance: SEMAGLUTIDE
     Route: 058
  7. ROSUVASTATIN [Concomitant]
     Active Substance: ROSUVASTATIN
  8. TELMISARTAN [Concomitant]
     Active Substance: TELMISARTAN
  9. VIAGRA [Concomitant]
     Active Substance: SILDENAFIL CITRATE

REACTIONS (1)
  - Palpitations [Recovering/Resolving]
